FAERS Safety Report 6344031-3 (Version None)
Quarter: 2009Q3

REPORT INFORMATION
  Report Type: 
  Country: None (occurrence: None)
  Receive Date: 20090908
  Receipt Date: 20090729
  Transmission Date: 20100115
  Serious: Yes (Hospitalization)
  Sender: FDA-Public Use
  Company Number: JP-PFIZER INC-2009232577

PATIENT
  Age: 53 Year

DRUGS (11)
  1. SUNITINIB MALATE [Suspect]
     Indication: HEPATIC NEOPLASM MALIGNANT
     Dosage: 37.5 MG, 1X/DAY
     Route: 048
     Dates: start: 20090605
  2. URSODEOXYCHOLIC ACID [Concomitant]
     Dosage: UNK
     Route: 048
     Dates: start: 20090618
  3. FAMOTIDINE [Concomitant]
     Dosage: UNK
     Route: 048
     Dates: start: 20090619
  4. CARBOCISTEINE [Concomitant]
     Dosage: UNK
     Route: 048
     Dates: start: 20090620
  5. AMBROXOL HYDROCHLORIDE [Concomitant]
     Dosage: UNK
     Route: 048
     Dates: start: 20090620
  6. TRANEXAMIC ACID [Concomitant]
     Dosage: UNK
     Route: 048
     Dates: start: 20090620
  7. DIMEMORFAN PHOSPHATE [Concomitant]
     Dosage: UNK
     Route: 048
     Dates: start: 20090620
  8. AMLODIPINE BESILATE [Concomitant]
     Dosage: UNK
     Route: 048
     Dates: start: 20090620
  9. UREA [Concomitant]
     Dosage: UNK
     Route: 062
     Dates: start: 20090603
  10. DIFLUPREDNATE [Concomitant]
     Dosage: UNK
     Route: 062
     Dates: start: 20090613
  11. LOXOPROFEN SODIUM [Concomitant]
     Dosage: UNK
     Route: 048
     Dates: start: 20090615

REACTIONS (1)
  - PALMAR-PLANTAR ERYTHRODYSAESTHESIA SYNDROME [None]
